FAERS Safety Report 8495696-1 (Version None)
Quarter: 2012Q3

REPORT INFORMATION
  Report Type: 
  Country: None (occurrence: None)
  Receive Date: 20120709
  Receipt Date: 20120703
  Transmission Date: 20120928
  Serious: No
  Sender: FDA-Public Use
  Company Number: US-PFIZER INC-2010097338

PATIENT
  Sex: Male

DRUGS (1)
  1. SUTENT [Suspect]
     Indication: RENAL CELL CARCINOMA
     Dosage: 50 MG, DAILY (4 WEEKS ON, 2 WEEKS OFF)
     Route: 048
     Dates: start: 20080101, end: 20120601

REACTIONS (4)
  - THYROID DISORDER [None]
  - RENAL CELL CARCINOMA [None]
  - DIARRHOEA [None]
  - DISEASE PROGRESSION [None]
